FAERS Safety Report 6242887-6 (Version None)
Quarter: 2009Q2

REPORT INFORMATION
  Report Type: 
  Country: None (occurrence: None)
  Receive Date: 20090617
  Receipt Date: 20071114
  Transmission Date: 20091009
  Serious: No
  Sender: FDA-Public Use
  Company Number: 269357

PATIENT
  Age: 66 Year
  Sex: Male

DRUGS (7)
  1. LEVEMIR [Suspect]
     Indication: TYPE 2 DIABETES MELLITUS
     Dosage: 35 U, QD, SUBCUTANEOUS
     Route: 058
  2. QUINAPRIL [Concomitant]
  3. GLUCOTROL [Concomitant]
  4. ASPIRIN [Concomitant]
  5. MULTIVITAMIN [Concomitant]
  6. ZETIA [Concomitant]
  7. SIMVASTATIN [Concomitant]

REACTIONS (1)
  - INJECTION SITE HAEMORRHAGE [None]
